FAERS Safety Report 4966397-9 (Version None)
Quarter: 2006Q1

REPORT INFORMATION
  Report Type: 
  Country: None (occurrence: None)
  Receive Date: 20060201
  Receipt Date: 20051128
  Transmission Date: 20060701
  Serious: No
  Sender: FDA-Public Use
  Company Number: 2005PV004903

PATIENT
  Age: 71 Year
  Sex: Male
  Weight: 120.6568 kg

DRUGS (3)
  1. BYETTA [Suspect]
     Indication: DIABETES MELLITUS NON-INSULIN-DEPENDENT
     Dosage: 5 MCG;BID;SC
     Route: 058
     Dates: start: 20051021
  2. FUROSEMIDE [Concomitant]
  3. METOLAZONE [Concomitant]

REACTIONS (5)
  - BLOOD GLUCOSE DECREASED [None]
  - COUGH [None]
  - DECREASED APPETITE [None]
  - DRUG EFFECT DECREASED [None]
  - NASOPHARYNGITIS [None]
